FAERS Safety Report 19750115 (Version 1)
Quarter: 2021Q3

REPORT INFORMATION
  Report Type: Spontaneous
  Country: US (occurrence: US)
  Receive Date: 20210824
  Receipt Date: 20210824
  Transmission Date: 20211014
  Serious: No
  Sender: FDA-Public Use
  Company Number: None

PATIENT

DRUGS (2)
  1. EPINEPHRINE. [Suspect]
     Active Substance: EPINEPHRINE
     Route: 058
  2. EPHEDRINE. [Suspect]
     Active Substance: EPHEDRINE
     Route: 042

REACTIONS (4)
  - Product preparation issue [None]
  - Product packaging confusion [None]
  - Inadequate aseptic technique in use of product [None]
  - Product label confusion [None]
